FAERS Safety Report 20840549 (Version 3)
Quarter: 2023Q2

REPORT INFORMATION
  Report Type: Spontaneous
  Country: US (occurrence: US)
  Receive Date: 20220517
  Receipt Date: 20230405
  Transmission Date: 20230721
  Serious: Yes (Hospitalization)
  Sender: FDA-Public Use
  Company Number: US-PFIZER INC-202200519523

PATIENT
  Age: 75 Year
  Sex: Female
  Weight: 43.09 kg

DRUGS (1)
  1. XELJANZ [Suspect]
     Active Substance: TOFACITINIB CITRATE
     Indication: Rheumatoid arthritis
     Dosage: 5 MG, 2X/DAY (5MG ONE TABLET TWICE DAILY BY MOUTH)
     Route: 048
     Dates: end: 202203

REACTIONS (7)
  - Spinal operation [Recovered/Resolved with Sequelae]
  - Condition aggravated [Unknown]
  - Laryngitis [Unknown]
  - Aphonia [Unknown]
  - Arthralgia [Not Recovered/Not Resolved]
  - Swelling [Not Recovered/Not Resolved]
  - Musculoskeletal stiffness [Not Recovered/Not Resolved]

NARRATIVE: CASE EVENT DATE: 20211101
